FAERS Safety Report 6081328-9 (Version None)
Quarter: 2009Q1

REPORT INFORMATION
  Report Type: 
  Country: None (occurrence: None)
  Receive Date: 20090218
  Receipt Date: 20090210
  Transmission Date: 20090719
  Serious: Yes (Death)
  Sender: FDA-Public Use
  Company Number: US-CELGENEUS-163-20785-08071145

PATIENT
  Sex: Male

DRUGS (3)
  1. THALOMID [Suspect]
     Dosage: 400-200MG
     Route: 048
     Dates: start: 20060131, end: 20070801
  2. THALOMID [Suspect]
     Route: 048
     Dates: start: 20070822, end: 20071001
  3. THALOMID [Suspect]
     Route: 048
     Dates: start: 20071019, end: 20080501

REACTIONS (1)
  - MULTIPLE MYELOMA [None]
